FAERS Safety Report 9423700 (Version 1)
Quarter: 2013Q3

REPORT INFORMATION
  Report Type: Spontaneous
  Country: CN (occurrence: CN)
  Receive Date: 20130727
  Receipt Date: 20130727
  Transmission Date: 20140515
  Serious: Yes (Death, Hospitalization, Other)
  Sender: FDA-Public Use
  Company Number: PHHY2013CN078577

PATIENT
  Sex: 0

DRUGS (2)
  1. CISPLATIN [Suspect]
     Route: 064
  2. 5-FLUOROURACIL [Suspect]
     Route: 064

REACTIONS (2)
  - Neonatal respiratory distress syndrome [Fatal]
  - Foetal exposure during pregnancy [Unknown]
